FAERS Safety Report 12312776 (Version 1)
Quarter: 2016Q2

REPORT INFORMATION
  Report Type: Spontaneous
  Country: US (occurrence: None)
  Receive Date: 20160427
  Receipt Date: 20160427
  Transmission Date: 20160815
  Serious: Yes (Disabling)
  Sender: FDA-Public Use
  Company Number: None

PATIENT
  Age: 53 Year
  Sex: Female
  Weight: 62.14 kg

DRUGS (11)
  1. ZINC [Concomitant]
     Active Substance: ZINC\ZINC CHLORIDE
  2. MONISTAT 3 [Suspect]
     Active Substance: MICONAZOLE NITRATE
     Indication: FUNGAL INFECTION
     Dosage: 1 SUPPOSITORY(IES)  AT BEDTIME VAGINAL
     Route: 067
     Dates: start: 20160419, end: 20160419
  3. VICODIN [Concomitant]
     Active Substance: ACETAMINOPHEN\HYDROCODONE BITARTRATE
  4. MULTIVITAMINS [Concomitant]
     Active Substance: VITAMINS
  5. AUGMENTIN [Concomitant]
     Active Substance: AMOXICILLIN\CLAVULANATE POTASSIUM
  6. IBUPROFEN. [Concomitant]
     Active Substance: IBUPROFEN
  7. GARLIC. [Concomitant]
     Active Substance: GARLIC
  8. CLOBETASOL PROPIONATE. [Concomitant]
     Active Substance: CLOBETASOL PROPIONATE
  9. LEVOTHYROXINE. [Concomitant]
     Active Substance: LEVOTHYROXINE
  10. ECHINACEA [Concomitant]
     Active Substance: ECHINACEA, UNSPECIFIED
  11. LIDOCAINE HYDROCHLORIDE JELLY (2%) [Concomitant]

REACTIONS (11)
  - Stress [None]
  - Dyspnoea [None]
  - Aphthous ulcer [None]
  - Oedema genital [None]
  - Application site swelling [None]
  - Genital pain [None]
  - Application site pain [None]
  - Drug ineffective [None]
  - Injury [None]
  - Application site erythema [None]
  - Genital erythema [None]

NARRATIVE: CASE EVENT DATE: 20160419
